FAERS Safety Report 20121414 (Version 1)
Quarter: 2021Q4

REPORT INFORMATION
  Report Type: Spontaneous
  Country: US (occurrence: None)
  Receive Date: 20211125
  Receipt Date: 20211125
  Transmission Date: 20220304
  Serious: Yes (Hospitalization)
  Sender: FDA-Public Use
  Company Number: None

PATIENT
  Sex: Female
  Weight: 96.8 kg

DRUGS (3)
  1. DEXAMETHASONE [Suspect]
     Active Substance: DEXAMETHASONE
     Indication: Product used for unknown indication
     Dates: start: 20180508, end: 20181030
  2. LENALIDOMIDE [Suspect]
     Active Substance: LENALIDOMIDE
     Indication: Product used for unknown indication
     Dates: start: 20180508, end: 20210115
  3. VELCADE [Suspect]
     Active Substance: BORTEZOMIB
     Indication: Product used for unknown indication
     Dates: start: 20180508, end: 20190129

REACTIONS (15)
  - Asthenia [None]
  - Dizziness [None]
  - Fall [None]
  - Blood glucose decreased [None]
  - Atrial fibrillation [None]
  - Shift to the left [None]
  - Bandaemia [None]
  - White blood cell count decreased [None]
  - Culture urine positive [None]
  - Escherichia infection [None]
  - COVID-19 [None]
  - Bacterial infection [None]
  - Coinfection [None]
  - Acute myocardial infarction [None]
  - Acute myocardial infarction [None]

NARRATIVE: CASE EVENT DATE: 20210116
